FAERS Safety Report 25146730 (Version 1)
Quarter: 2025Q2

REPORT INFORMATION
  Report Type: Spontaneous
  Country: IT (occurrence: IT)
  Receive Date: 20250401
  Receipt Date: 20250401
  Transmission Date: 20250717
  Serious: Yes (Other)
  Sender: SANDOZ
  Company Number: IT-SANDOZ-SDZ2025IT019403

PATIENT
  Age: 24 Year
  Sex: Male

DRUGS (1)
  1. AMOXICILLIN\CLAVULANIC ACID [Suspect]
     Active Substance: AMOXICILLIN\CLAVULANIC ACID
     Indication: Urethritis
     Route: 065

REACTIONS (2)
  - Parvovirus B19 infection reactivation [Recovered/Resolved]
  - Infectious mononucleosis [Recovered/Resolved]
